FAERS Safety Report 4740510-0 (Version None)
Quarter: 2005Q3

REPORT INFORMATION
  Report Type: 
  Country: None (occurrence: None)
  Receive Date: 20050810
  Receipt Date: 20050307
  Transmission Date: 20060218
  Serious: Yes (Other)
  Sender: FDA-Public Use
  Company Number: PHNU2005DE01249

PATIENT
  Age: 61 Year
  Sex: Female

DRUGS (8)
  1. ZOMETA [Suspect]
     Indication: BREAST CANCER METASTATIC
  2. TAMOXIFEN [Concomitant]
     Indication: BREAST CANCER
     Route: 065
     Dates: start: 20010601, end: 20030201
  3. ANASTROZOLE [Concomitant]
     Indication: BREAST CANCER
     Route: 065
     Dates: start: 20030201, end: 20031001
  4. EPIRUBICIN [Concomitant]
     Dosage: 6 CYCLES
     Route: 065
     Dates: start: 20010701, end: 20020101
  5. GEMCITABINE [Concomitant]
     Dosage: 6 CYCLES
     Route: 065
     Dates: start: 20010701, end: 20020101
  6. BISPHOSPHONATES [Concomitant]
     Dosage: 1 DF, QMO
     Route: 065
     Dates: start: 20010701
  7. MITOXANTRONE [Concomitant]
     Indication: METASTASES TO LIVER
     Route: 065
     Dates: start: 20050501
  8. FLUOROURACIL [Concomitant]
     Indication: METASTASES TO LIVER
     Route: 065
     Dates: start: 20050501

REACTIONS (3)
  - ACTINOMYCOSIS [None]
  - ASEPTIC NECROSIS BONE [None]
  - OSTEONECROSIS [None]
